FAERS Safety Report 7519000-8 (Version None)
Quarter: 2011Q2

REPORT INFORMATION
  Report Type: 
  Country: None (occurrence: None)
  Receive Date: 20110523
  Receipt Date: 20110509
  Transmission Date: 20111010
  Serious: Yes (Hospitalization, Other)
  Sender: FDA-Public Use
  Company Number: 2011MA005704

PATIENT
  Age: 48 Year
  Sex: Female

DRUGS (3)
  1. PHENYTOIN [Suspect]
     Dosage: 300 MG, OD;
  2. DEXAMETHASONE [Concomitant]
  3. DIURETICS [Concomitant]

REACTIONS (1)
  - STEVENS-JOHNSON SYNDROME [None]
